FAERS Safety Report 7209817-1 (Version None)
Quarter: 2011Q1

REPORT INFORMATION
  Report Type: 
  Country: None (occurrence: None)
  Receive Date: 20110104
  Receipt Date: 20101228
  Transmission Date: 20110831
  Serious: Yes (Hospitalization)
  Sender: FDA-Public Use
  Company Number: US-GENENTECH-311886

PATIENT
  Age: 53 Week
  Sex: Female

DRUGS (5)
  1. MYOZYME [Suspect]
     Indication: GLYCOGEN STORAGE DISEASE TYPE II
     Dosage: 20 MG/KG, 1/MONTH
     Route: 042
     Dates: start: 20091110
  2. METHOTREXATE [Suspect]
     Indication: IMMUNOSUPPRESSION
     Dosage: 0.4 MG/KG, UNK
     Dates: start: 20091110, end: 20091210
  3. SALINE [Suspect]
     Indication: PRODUCT USED FOR UNKNOWN INDICATION
     Dosage: 10 MG/KG, SINGLE
     Route: 040
     Dates: start: 20100520
  4. RITUXIMAB [Suspect]
     Indication: IMMUNOSUPPRESSION
     Dosage: 375 MG/M2, 1/WEEK
     Route: 042
     Dates: start: 20091109
  5. IMMUNE GLOBULIN NOS [Suspect]
     Indication: PRODUCT USED FOR UNKNOWN INDICATION
     Dosage: UNK
     Route: 042
     Dates: start: 20090101

REACTIONS (3)
  - DEVICE RELATED INFECTION [None]
  - RESPIRATORY DISTRESS [None]
  - CLOSTRIDIUM DIFFICILE COLITIS [None]
